FAERS Safety Report 15561353 (Version 1)
Quarter: 2018Q4

REPORT INFORMATION
  Report Type: Spontaneous
  Country: US (occurrence: US)
  Receive Date: 20181024
  Receipt Date: 20181024
  Transmission Date: 20190205
  Serious: No
  Sender: FDA-Public Use
  Company Number: None

PATIENT
  Age: 50 Year
  Sex: Male

DRUGS (16)
  1. XANAX [Concomitant]
     Active Substance: ALPRAZOLAM
  2. PHENERGAN [Concomitant]
     Active Substance: PROMETHAZINE HYDROCHLORIDE
  3. NITROSTAT [Concomitant]
     Active Substance: NITROGLYCERIN
  4. TAMSULOSIN [Concomitant]
     Active Substance: TAMSULOSIN
  5. HYDROXYX HCL [Concomitant]
  6. PHENADOZ [Concomitant]
     Active Substance: PROMETHAZINE HYDROCHLORIDE
  7. TRIUMEQ [Suspect]
     Active Substance: ABACAVIR SULFATE\DOLUTEGRAVIR SODIUM\LAMIVUDINE
     Indication: HIV TEST
     Dosage: ?          OTHER DOSE:1 TABLET;?
     Route: 048
     Dates: start: 20040427
  8. LISINOPRIL. [Concomitant]
     Active Substance: LISINOPRIL
  9. LORTAB [Concomitant]
     Active Substance: ACETAMINOPHEN\HYDROCODONE BITARTRATE
  10. ISOSORB [Concomitant]
  11. NITROGLYCERIN. [Concomitant]
     Active Substance: NITROGLYCERIN
  12. HYDROCHLOROT [Concomitant]
     Active Substance: HYDROCHLOROTHIAZIDE
  13. AVODART [Concomitant]
     Active Substance: DUTASTERIDE
  14. FREDNISONE [Concomitant]
  15. TOPROL XL [Concomitant]
     Active Substance: METOPROLOL SUCCINATE
  16. LEXA [Concomitant]

REACTIONS (2)
  - Nightmare [None]
  - Weight increased [None]
